FAERS Safety Report 18629712 (Version 1)
Quarter: 2020Q4

REPORT INFORMATION
  Report Type: Report from Study
  Country: BR (occurrence: BR)
  Receive Date: 20201217
  Receipt Date: 20201217
  Transmission Date: 20210114
  Serious: Yes (Other)
  Sender: FDA-Public Use
  Company Number: NVSC2020BR042566

PATIENT
  Age: 44 Year
  Sex: Female

DRUGS (3)
  1. COSENTYX [Suspect]
     Active Substance: SECUKINUMAB
     Dosage: UNK
     Route: 065
     Dates: start: 20201020
  2. COSENTYX [Suspect]
     Active Substance: SECUKINUMAB
     Indication: PSORIATIC ARTHROPATHY
     Dosage: UNK
     Route: 065
     Dates: start: 20170919
  3. COSENTYX [Suspect]
     Active Substance: SECUKINUMAB
     Dosage: 300 MG, UNKNOWN
     Route: 065
     Dates: start: 20200919

REACTIONS (14)
  - Asthenia [Unknown]
  - Inappropriate schedule of product administration [Unknown]
  - Arthralgia [Unknown]
  - Anger [Recovered/Resolved]
  - Joint swelling [Recovering/Resolving]
  - Decreased immune responsiveness [Recovering/Resolving]
  - Malaise [Unknown]
  - Product dose omission issue [Unknown]
  - Headache [Recovered/Resolved]
  - Influenza [Unknown]
  - Autoimmune disorder [Unknown]
  - Amnesia [Unknown]
  - Fear [Unknown]
  - Feeling abnormal [Not Recovered/Not Resolved]

NARRATIVE: CASE EVENT DATE: 2020
